FAERS Safety Report 23524028 (Version 2)
Quarter: 2024Q1

REPORT INFORMATION
  Report Type: Spontaneous
  Country: US (occurrence: US)
  Receive Date: 20240214
  Receipt Date: 20240301
  Transmission Date: 20240409
  Serious: No
  Sender: FDA-Public Use
  Company Number: US-SUNOVION-2024SUN000108

PATIENT

DRUGS (9)
  1. APTIOM [Suspect]
     Active Substance: ESLICARBAZEPINE ACETATE
     Indication: Seizure
     Dosage: 200 MG
     Route: 048
     Dates: start: 20231208
  2. APTIOM [Suspect]
     Active Substance: ESLICARBAZEPINE ACETATE
     Dosage: 400 MG, QD
     Route: 048
     Dates: start: 20231214
  3. APTIOM [Suspect]
     Active Substance: ESLICARBAZEPINE ACETATE
     Dosage: 600 MG, QD
     Route: 048
     Dates: start: 20231218
  4. APTIOM [Suspect]
     Active Substance: ESLICARBAZEPINE ACETATE
     Dosage: 800 MG, QD
     Route: 048
     Dates: start: 20231221, end: 20231229
  5. APTIOM [Suspect]
     Active Substance: ESLICARBAZEPINE ACETATE
     Dosage: 1200 MG, QD
     Route: 048
     Dates: start: 20231230, end: 20240202
  6. APTIOM [Suspect]
     Active Substance: ESLICARBAZEPINE ACETATE
     Dosage: 1600 MG, QD
     Route: 048
     Dates: start: 20240203
  7. ZONISAMIDE [Concomitant]
     Active Substance: ZONISAMIDE
     Indication: Seizure
     Dosage: 100 MG, QD
     Route: 048
     Dates: start: 202309, end: 202401
  8. ZONISAMIDE [Concomitant]
     Active Substance: ZONISAMIDE
     Dosage: 100 MG  TWO CAPSULES NIGHTLY FOR 10 DAYS
     Route: 048
  9. ZONISAMIDE [Concomitant]
     Active Substance: ZONISAMIDE
     Dosage: 100 MG THREE CAPSULES NIGHTLY FOR TEN DAYS
     Route: 048

REACTIONS (4)
  - Pruritus [Recovered/Resolved]
  - Eczema [Recovered/Resolved]
  - Rash [Recovered/Resolved]
  - Memory impairment [Not Recovered/Not Resolved]
